FAERS Safety Report 25942354 (Version 2)
Quarter: 2025Q4

REPORT INFORMATION
  Report Type: Spontaneous
  Country: US (occurrence: US)
  Receive Date: 20251021
  Receipt Date: 20251113
  Transmission Date: 20260118
  Serious: Yes (Hospitalization, Other)
  Sender: SANDOZ
  Company Number: US-SANDOZ-SDZ2025US077216

PATIENT
  Sex: Female
  Weight: 62.1 kg

DRUGS (35)
  1. FAMOTIDINE [Suspect]
     Active Substance: FAMOTIDINE
     Indication: Vomiting
     Dosage: UNK
     Route: 065
     Dates: start: 2025
  2. FAMOTIDINE [Suspect]
     Active Substance: FAMOTIDINE
     Indication: Nausea
  3. ORENITRAM [Suspect]
     Active Substance: TREPROSTINIL
     Dosage: 3 MG, TID
     Route: 048
     Dates: start: 202508
  4. ORENITRAM [Suspect]
     Active Substance: TREPROSTINIL
     Dosage: 6 MG, TID
     Route: 048
     Dates: start: 2025, end: 2025
  5. ORENITRAM [Suspect]
     Active Substance: TREPROSTINIL
     Indication: Portopulmonary hypertension
     Dosage: 6.125 MG, Q8H
     Route: 048
     Dates: start: 20250813, end: 202508
  6. ORENITRAM [Suspect]
     Active Substance: TREPROSTINIL
     Dosage: 6.25 MG, TID
     Route: 048
     Dates: start: 202508, end: 202508
  7. ORENITRAM [Suspect]
     Active Substance: TREPROSTINIL
     Dosage: 6.5 MG, TID
     Route: 048
     Dates: start: 202508, end: 2025
  8. ORENITRAM [Suspect]
     Active Substance: TREPROSTINIL
     Dosage: 7 MG, TID
     Route: 048
     Dates: start: 2025, end: 2025
  9. ORENITRAM [Suspect]
     Active Substance: TREPROSTINIL
     Dosage: UNK,
     Route: 048
     Dates: start: 2025
  10. REMODULIN [Suspect]
     Active Substance: TREPROSTINIL
     Indication: Portopulmonary hypertension
     Dosage: 0.025 UG/KG
     Route: 041
     Dates: start: 20250224, end: 202508
  11. ZOFRAN [Suspect]
     Active Substance: ONDANSETRON HYDROCHLORIDE
     Indication: Vomiting
     Dosage: UNK
     Route: 065
     Dates: start: 2025
  12. ZOFRAN [Suspect]
     Active Substance: ONDANSETRON HYDROCHLORIDE
     Indication: Nausea
  13. CARVEDILOL [Concomitant]
     Active Substance: CARVEDILOL
     Indication: Product used for unknown indication
     Route: 065
  14. DIGOXIN [Concomitant]
     Active Substance: DIGOXIN
     Indication: Product used for unknown indication
     Route: 065
  15. FLUOXETINE HYDROCHLORIDE [Concomitant]
     Active Substance: FLUOXETINE HYDROCHLORIDE
     Indication: Product used for unknown indication
     Route: 065
  16. GABAPENTIN [Concomitant]
     Active Substance: GABAPENTIN
     Indication: Product used for unknown indication
     Route: 065
  17. HYDROXYZINE HYDROCHLORIDE [Concomitant]
     Active Substance: HYDROXYZINE HYDROCHLORIDE
     Indication: Product used for unknown indication
     Route: 065
  18. LAMOTRIGINE [Concomitant]
     Active Substance: LAMOTRIGINE
     Indication: Product used for unknown indication
     Route: 065
  19. LASIX [Concomitant]
     Active Substance: FUROSEMIDE
     Indication: Product used for unknown indication
     Route: 065
  20. METHOCARBAMOL [Concomitant]
     Active Substance: METHOCARBAMOL
     Indication: Product used for unknown indication
     Route: 065
  21. MIRAPEX [Concomitant]
     Active Substance: PRAMIPEXOLE DIHYDROCHLORIDE
     Indication: Product used for unknown indication
     Route: 065
  22. MYCOPHENOLIC ACID [Concomitant]
     Active Substance: MYCOPHENOLIC ACID
     Indication: Product used for unknown indication
     Route: 065
  23. OPSUMIT [Concomitant]
     Active Substance: MACITENTAN
     Indication: Product used for unknown indication
     Route: 065
  24. PANTOPRAZOLE SODIUM [Concomitant]
     Active Substance: PANTOPRAZOLE SODIUM
     Indication: Product used for unknown indication
     Route: 065
  25. POTASSIUM CHLORIDE [Concomitant]
     Active Substance: POTASSIUM CHLORIDE
     Indication: Product used for unknown indication
     Route: 065
  26. PRAMIPEXOLE DIHYDROCHLORIDE [Concomitant]
     Active Substance: PRAMIPEXOLE DIHYDROCHLORIDE
     Indication: Product used for unknown indication
     Route: 065
  27. PREDNISONE [Concomitant]
     Active Substance: PREDNISONE
     Indication: Product used for unknown indication
     Route: 065
  28. PREGABALIN [Concomitant]
     Active Substance: PREGABALIN
     Indication: Product used for unknown indication
     Route: 065
  29. RAMELTEON [Concomitant]
     Active Substance: RAMELTEON
     Indication: Product used for unknown indication
     Route: 065
  30. SENNA S [Concomitant]
     Active Substance: DOCUSATE SODIUM\SENNOSIDES
     Indication: Product used for unknown indication
     Route: 065
  31. SINGULAIR [Concomitant]
     Active Substance: MONTELUKAST SODIUM
     Indication: Product used for unknown indication
     Route: 065
  32. SODIUM CHLORIDE [Concomitant]
     Active Substance: SODIUM CHLORIDE
     Indication: Product used for unknown indication
     Route: 065
  33. SPIRONOLACTONE [Concomitant]
     Active Substance: SPIRONOLACTONE
     Indication: Product used for unknown indication
     Route: 065
  34. TADALAFIL [Concomitant]
     Active Substance: TADALAFIL
     Indication: Product used for unknown indication
     Route: 065
  35. XANAX [Concomitant]
     Active Substance: ALPRAZOLAM
     Indication: Product used for unknown indication
     Route: 065

REACTIONS (8)
  - Ovarian cyst [Unknown]
  - Nausea [Recovered/Resolved]
  - Vomiting [Recovered/Resolved]
  - Weight decreased [Recovered/Resolved]
  - Cystitis [Unknown]
  - Flushing [Not Recovered/Not Resolved]
  - Therapy partial responder [Unknown]
  - Drug ineffective [Unknown]
